FAERS Safety Report 22274288 (Version 1)
Quarter: 2023Q2

REPORT INFORMATION
  Report Type: Spontaneous
  Country: US (occurrence: US)
  Receive Date: 20230502
  Receipt Date: 20230502
  Transmission Date: 20230722
  Serious: Yes (Other)
  Sender: FDA-Public Use
  Company Number: US-AMNEAL PHARMACEUTICALS-2023-AMRX-00148

PATIENT
  Sex: Female
  Weight: 18.141 kg

DRUGS (1)
  1. VIGABATRIN [Suspect]
     Active Substance: VIGABATRIN
     Indication: Product used for unknown indication
     Dosage: 1000MG AT MORNING AND 1500 MG IN THE EVENING
     Route: 048

REACTIONS (1)
  - Change in seizure presentation [Unknown]
